FAERS Safety Report 8781135 (Version 2)
Quarter: 2012Q4

REPORT INFORMATION
  Report Type: 
  Country: JP (occurrence: JP)
  Receive Date: 20120913
  Receipt Date: 20120913
  Transmission Date: 20130627
  Serious: Yes (Death)
  Sender: FDA-Public Use
  Company Number: PHHY2012JP069154

PATIENT
  Age: 56 Year
  Sex: Male

DRUGS (6)
  1. AFINITOR [Suspect]
     Indication: RENAL CELL CARCINOMA
     Route: 048
     Dates: start: 20111209, end: 20120215
  2. TEMSIROLIMUS [Concomitant]
     Indication: RENAL CELL CARCINOMA
  3. SUNITINIB MALATE [Concomitant]
     Indication: RENAL CELL CARCINOMA
     Route: 048
  4. OXYCONTIN [Concomitant]
     Dosage: 20 mg, UNK
     Route: 048
     Dates: end: 20120215
  5. BAYASPIRIN [Concomitant]
     Dosage: 100 mg, UNK
     Route: 048
     Dates: end: 20120215
  6. LOXOPROFEN [Concomitant]
     Dosage: 60 mg, UNK
     Route: 048
     Dates: end: 20120215

REACTIONS (4)
  - General physical health deterioration [Fatal]
  - Decreased appetite [Not Recovered/Not Resolved]
  - Pyrexia [Not Recovered/Not Resolved]
  - Hypotension [Not Recovered/Not Resolved]
